FAERS Safety Report 7346794-7 (Version None)
Quarter: 2011Q1

REPORT INFORMATION
  Report Type: 
  Country: None (occurrence: None)
  Receive Date: 20110311
  Receipt Date: 20110301
  Transmission Date: 20110831
  Serious: Yes (Hospitalization)
  Sender: FDA-Public Use
  Company Number: US-JNJFOC-20110301095

PATIENT
  Sex: Male

DRUGS (7)
  1. ENALAPRIL MALEATE [Concomitant]
  2. REMICADE [Suspect]
     Route: 042
  3. DOVONEX [Concomitant]
     Route: 061
  4. BENADRYL [Concomitant]
     Indication: PREMEDICATION
  5. REMICADE [Suspect]
     Indication: PSORIASIS
     Route: 042
  6. TYLENOL [Concomitant]
     Indication: PREMEDICATION
     Route: 065
  7. TRIAMCINOLONE [Concomitant]
     Route: 065

REACTIONS (6)
  - PAIN [None]
  - MYALGIA [None]
  - PROTEIN URINE PRESENT [None]
  - LEUKOPENIA [None]
  - C-REACTIVE PROTEIN INCREASED [None]
  - ARTHRALGIA [None]
